FAERS Safety Report 9316056 (Version 1)
Quarter: 2013Q2

REPORT INFORMATION
  Report Type: Spontaneous
  Country: US (occurrence: US)
  Receive Date: 20130530
  Receipt Date: 20130530
  Transmission Date: 20140414
  Serious: No
  Sender: FDA-Public Use
  Company Number: US-BIOGENIDEC-2013BI047587

PATIENT
  Sex: Male

DRUGS (1)
  1. TYSABRI [Suspect]
     Indication: MULTIPLE SCLEROSIS
     Route: 042
     Dates: start: 20100423, end: 20130510

REACTIONS (5)
  - Wrist fracture [Unknown]
  - Fall [Recovered/Resolved]
  - Wrist deformity [Not Recovered/Not Resolved]
  - Upper limb fracture [Unknown]
  - Fatigue [Not Recovered/Not Resolved]
